FAERS Safety Report 25077973 (Version 1)
Quarter: 2025Q1

REPORT INFORMATION
  Report Type: Report from Study
  Country: JP (occurrence: JP)
  Receive Date: 20250314
  Receipt Date: 20250314
  Transmission Date: 20250409
  Serious: Yes (Death, Other)
  Sender: RIGEL PHARMACEUTICALS
  Company Number: JP-KISSEI-TL20250219_P_1

PATIENT
  Age: 87 Year
  Sex: Male
  Weight: 60 kg

DRUGS (5)
  1. FOSTAMATINIB DISODIUM [Suspect]
     Active Substance: FOSTAMATINIB DISODIUM
     Indication: Immune thrombocytopenia
     Dosage: 100 MG, BID
     Route: 048
     Dates: start: 20240514, end: 20240701
  2. PREDNISOLONE [Concomitant]
     Active Substance: PREDNISOLONE
     Indication: Immune thrombocytopenia
     Dosage: 60 MG, QD
     Route: 048
     Dates: end: 20240701
  3. ROMIPLOSTIM [Concomitant]
     Active Substance: ROMIPLOSTIM
     Indication: Immune thrombocytopenia
     Dosage: 120 MCG. QW
     Route: 058
     Dates: start: 20240530, end: 20240627
  4. RITUXIMAB [Concomitant]
     Active Substance: RITUXIMAB
     Indication: Immune thrombocytopenia
     Route: 041
     Dates: start: 20240620, end: 20240627
  5. PLATELETS [Concomitant]
     Active Substance: HUMAN PLATELET, ALLOGENIC
     Indication: Immune thrombocytopenia
     Route: 041
     Dates: start: 20240530, end: 20240621

REACTIONS (4)
  - Bladder cancer [Fatal]
  - Liver disorder [Not Recovered/Not Resolved]
  - Adverse event [Unknown]
  - Diarrhoea [Unknown]

NARRATIVE: CASE EVENT DATE: 20240621
